FAERS Safety Report 9319864 (Version 4)
Quarter: 2013Q3

REPORT INFORMATION
  Report Type: Spontaneous
  Country: US (occurrence: US)
  Receive Date: 20130530
  Receipt Date: 20130802
  Transmission Date: 20140515
  Serious: Yes (Other)
  Sender: FDA-Public Use
  Company Number: US-JNJFOC-20130513788

PATIENT
  Sex: Male

DRUGS (4)
  1. PREZISTA [Suspect]
     Indication: HIV INFECTION
     Route: 048
     Dates: end: 20130329
  2. INTELENCE [Concomitant]
     Indication: HIV INFECTION
     Route: 048
     Dates: end: 20130329
  3. ISENTRESS [Concomitant]
     Indication: HIV INFECTION
     Route: 048
  4. NORVIR [Concomitant]
     Indication: HIV INFECTION
     Route: 065

REACTIONS (3)
  - Gene mutation [Not Recovered/Not Resolved]
  - Treatment failure [Recovered/Resolved]
  - Drug resistance [Recovered/Resolved]
